FAERS Safety Report 22388466 (Version 1)
Quarter: 2023Q2

REPORT INFORMATION
  Report Type: Spontaneous
  Country: IN (occurrence: IN)
  Receive Date: 20230531
  Receipt Date: 20230531
  Transmission Date: 20230722
  Serious: Yes (Death, Hospitalization)
  Sender: FDA-Public Use
  Company Number: IN-drreddys-LIT/IND/23/0166346

PATIENT
  Age: 11 Year
  Sex: Male

DRUGS (8)
  1. AMPHOTERICIN B [Suspect]
     Active Substance: AMPHOTERICIN B
     Indication: Prophylaxis
  2. DEXAMETHASONE [Suspect]
     Active Substance: DEXAMETHASONE
     Indication: Prophylaxis
     Route: 042
  3. AZITHROMYCIN [Suspect]
     Active Substance: AZITHROMYCIN
     Indication: Prophylaxis
  4. RIFAMPIN [Suspect]
     Active Substance: RIFAMPIN
     Indication: Naegleria infection
  5. CEFTRIAXONE [Suspect]
     Active Substance: CEFTRIAXONE
     Indication: Naegleria infection
  6. ACYCLOVIR [Suspect]
     Active Substance: ACYCLOVIR
     Indication: Naegleria infection
  7. FLUCONAZOLE [Suspect]
     Active Substance: FLUCONAZOLE
     Indication: Prophylaxis
  8. MIDAZOLAM [Suspect]
     Active Substance: MIDAZOLAM
     Indication: Prophylaxis

REACTIONS (5)
  - Brain oedema [Fatal]
  - Condition aggravated [Fatal]
  - Brain herniation [Fatal]
  - Meningoencephalitis amoebic [Unknown]
  - Intracranial pressure increased [Unknown]
